FAERS Safety Report 16280437 (Version 3)
Quarter: 2019Q2

REPORT INFORMATION
  Report Type: Spontaneous
  Country: US (occurrence: US)
  Receive Date: 20190507
  Receipt Date: 20190523
  Transmission Date: 20190711
  Serious: Yes (Disabling)
  Sender: FDA-Public Use
  Company Number: US-AMGEN-USASP2019069408

PATIENT
  Age: 86 Year
  Sex: Female
  Weight: 60.32 kg

DRUGS (10)
  1. WELCHOL [Concomitant]
     Active Substance: COLESEVELAM HYDROCHLORIDE
     Indication: HYPERLIPIDAEMIA
     Dosage: 1875 MILLIGRAM, BID
     Route: 048
     Dates: start: 20101202
  2. CALCIUM CARBONATE. [Concomitant]
     Active Substance: CALCIUM CARBONATE
     Dosage: 1000 MILLIGRAM
  3. VITAMIN D3 [Concomitant]
     Active Substance: CHOLECALCIFEROL
     Dosage: 2000 UNIT
     Route: 048
  4. LOVAZA [Concomitant]
     Active Substance: OMEGA-3-ACID ETHYL ESTERS
     Indication: HYPERLIPIDAEMIA
     Dosage: 2 GRAM, BID
     Route: 048
     Dates: start: 20080111
  5. CEFZIL [Concomitant]
     Active Substance: CEFPROZIL
     Dosage: 500 MILLIGRAM
     Route: 048
  6. PROLIA [Suspect]
     Active Substance: DENOSUMAB
     Indication: OSTEOPOROSIS
     Dosage: 60 MILLIGRAM, Q6MO
     Route: 065
     Dates: start: 20190411, end: 20190430
  7. BREO ELLIPTA [Concomitant]
     Active Substance: FLUTICASONE FUROATE\VILANTEROL TRIFENATATE
     Dosage: 1 PUFF
     Route: 048
  8. XOPENEX HFA [Concomitant]
     Active Substance: LEVALBUTEROL TARTRATE
     Dosage: 1-2 PUFFS
     Route: 048
  9. ZETIA [Concomitant]
     Active Substance: EZETIMIBE
     Indication: HYPERLIPIDAEMIA
     Dosage: 10 MILLIGRAM, QD
     Route: 048
     Dates: start: 20110114
  10. TUMS [Concomitant]
     Active Substance: CALCIUM CARBONATE
     Dosage: 200 MILLIGRAM

REACTIONS (8)
  - Hypoaesthesia [Not Recovered/Not Resolved]
  - Paraesthesia [Not Recovered/Not Resolved]
  - Muscular weakness [Not Recovered/Not Resolved]
  - Nausea [Unknown]
  - Balance disorder [Not Recovered/Not Resolved]
  - Dizziness [Not Recovered/Not Resolved]
  - Blood magnesium increased [Unknown]
  - Left ventricular hypertrophy [Unknown]

NARRATIVE: CASE EVENT DATE: 20190413
